FAERS Safety Report 5065503-8 (Version None)
Quarter: 2006Q3

REPORT INFORMATION
  Report Type: 
  Country: None (occurrence: None)
  Receive Date: 20060731
  Receipt Date: 20060501
  Transmission Date: 20061208
  Serious: Yes (Hospitalization, Other)
  Sender: FDA-Public Use
  Company Number: US-BRISTOL-MYERS SQUIBB COMPANY-13364633

PATIENT
  Age: 28 Year
  Sex: Female

DRUGS (6)
  1. ZERIT [Suspect]
     Route: 048
     Dates: start: 20060109
  2. COMBIVIR [Suspect]
     Dosage: 600/300
     Route: 048
     Dates: start: 20051114, end: 20060109
  3. VIRACEPT [Suspect]
     Route: 048
     Dates: start: 20051114
  4. EPIVIR [Suspect]
     Route: 048
     Dates: start: 20060109
  5. AZITHROMYCIN [Concomitant]
     Indication: ANTIBIOTIC PROPHYLAXIS
  6. ACYCLOVIR [Concomitant]
     Indication: HERPES SIMPLEX

REACTIONS (13)
  - ANAEMIA [None]
  - CHORIOAMNIONITIS [None]
  - CRANIAL SUTURES WIDENING [None]
  - DRUG EXPOSURE DURING PREGNANCY [None]
  - FOETAL DISORDER [None]
  - FUNISITIS [None]
  - INTRAUTERINE INFECTION [None]
  - NEONATAL ASPIRATION [None]
  - PHLEBITIS [None]
  - PLACENTAL INSUFFICIENCY [None]
  - PNEUMOCYSTIS JIROVECI PNEUMONIA [None]
  - PREGNANCY [None]
  - STILLBIRTH [None]
